FAERS Safety Report 4655591-2 (Version None)
Quarter: 2005Q2

REPORT INFORMATION
  Report Type: 
  Country: None (occurrence: None)
  Receive Date: 20050505
  Receipt Date: 20050422
  Transmission Date: 20051028
  Serious: Yes (Hospitalization, Other)
  Sender: FDA-Public Use
  Company Number: HQWYE455929APR05

PATIENT
  Age: 47 Year
  Sex: Female
  Weight: 47.22 kg

DRUGS (3)
  1. RAPAMUNE [Suspect]
     Indication: PROPHYLAXIS AGAINST TRANSPLANT REJECTION
     Dosage: 2 MG 1X PER 1 DAY, ORAL
     Route: 048
     Dates: start: 20050119
  2. CORTICOSTEROID NOS (CORTICOSTEROID NOS, ) [Suspect]
     Indication: PROPHYLAXIS AGAINST TRANSPLANT REJECTION
     Dosage: 20 MG 1X PER 1 DAY
  3. TRACROLIMUS (TACROLIMUS, ) [Suspect]
     Indication: PROPHYLAXIS AGAINST TRANSPLANT REJECTION
     Dosage: 3 MG 2X PER 1 DAY, ORAL
     Route: 048
     Dates: start: 20050119

REACTIONS (5)
  - ATELECTASIS [None]
  - BLOOD CREATININE INCREASED [None]
  - COMPLICATIONS OF TRANSPLANTED KIDNEY [None]
  - HAEMATURIA [None]
  - LUNG INFILTRATION [None]
